FAERS Safety Report 10279245 (Version 1)
Quarter: 2014Q3

REPORT INFORMATION
  Report Type: Spontaneous
  Country: US (occurrence: US)
  Receive Date: 20140707
  Receipt Date: 20140707
  Transmission Date: 20150326
  Serious: No
  Sender: FDA-Public Use
  Company Number: US-BIOGENIDEC-2014BI031176

PATIENT
  Sex: Female

DRUGS (2)
  1. AVONEX [Suspect]
     Active Substance: INTERFERON BETA-1A
     Indication: MULTIPLE SCLEROSIS
     Route: 030
     Dates: start: 20140123
  2. AVONEX [Suspect]
     Active Substance: INTERFERON BETA-1A
     Indication: MULTIPLE SCLEROSIS
     Route: 030
     Dates: start: 20131227

REACTIONS (11)
  - Injection site haemorrhage [Unknown]
  - Sensory disturbance [Unknown]
  - Dizziness [Unknown]
  - Memory impairment [Unknown]
  - Vascular injury [Unknown]
  - Multiple sclerosis relapse [Recovered/Resolved]
  - Contusion [Unknown]
  - Injection site reaction [Recovered/Resolved]
  - Influenza like illness [Recovered/Resolved]
  - Anxiety [Unknown]
  - Hypoaesthesia [Not Recovered/Not Resolved]

NARRATIVE: CASE EVENT DATE: 2014
